FAERS Safety Report 13537443 (Version 1)
Quarter: 2017Q2

REPORT INFORMATION
  Report Type: Spontaneous
  Country: IR (occurrence: IR)
  Receive Date: 20170511
  Receipt Date: 20170511
  Transmission Date: 20170830
  Serious: Yes (Other)
  Sender: FDA-Public Use
  Company Number: IR-GE HEALTHCARE LIFE SCIENCES-2017CSU001184

PATIENT

DRUGS (5)
  1. PLAVIX [Concomitant]
     Active Substance: CLOPIDOGREL BISULFATE
     Indication: CORONARY ARTERY DISEASE
     Dosage: 75 MG, UNK
     Route: 048
     Dates: start: 20170213, end: 20170216
  2. VISIPAQUE [Suspect]
     Active Substance: IODIXANOL
     Indication: CORONARY ARTERY DISEASE
     Dosage: 100 ML, SINGLE
     Route: 013
     Dates: start: 20170216, end: 20170216
  3. ASPIRIN (E.C.) [Concomitant]
     Active Substance: ASPIRIN
     Indication: CORONARY ARTERY DISEASE
     Dosage: 80 MG, UNK
     Route: 048
     Dates: start: 20170213, end: 20170216
  4. INTEGRILIN [Concomitant]
     Active Substance: EPTIFIBATIDE
     Indication: CORONARY ARTERY DISEASE
     Dosage: 10 ML, UNK
     Route: 042
     Dates: start: 20170216, end: 20170216
  5. HEPARIN SODIUM CHLORIDE [Concomitant]
     Indication: CORONARY ARTERY DISEASE
     Dosage: 5000 U/ML
     Route: 042
     Dates: start: 20170216, end: 20170216

REACTIONS (2)
  - Urticaria [Recovered/Resolved]
  - Ocular hyperaemia [Recovered/Resolved]

NARRATIVE: CASE EVENT DATE: 20170216
